FAERS Safety Report 16072329 (Version 1)
Quarter: 2019Q1

REPORT INFORMATION
  Report Type: Spontaneous
  Country: US (occurrence: US)
  Receive Date: 20190314
  Receipt Date: 20190314
  Transmission Date: 20190418
  Serious: No
  Sender: FDA-Public Use
  Company Number: US-ALLERGAN-1900187US

PATIENT
  Sex: Female

DRUGS (4)
  1. CANASA [Suspect]
     Active Substance: MESALAMINE
     Indication: PROCTITIS ULCERATIVE
     Dosage: UNK
     Route: 054
     Dates: start: 201901
  2. ROWASA [Suspect]
     Active Substance: MESALAMINE
     Indication: COLITIS ULCERATIVE
     Dosage: UNK, PRN
     Route: 054
  3. CANASA [Suspect]
     Active Substance: MESALAMINE
     Dosage: UNK
     Route: 054
  4. LIALDA [Concomitant]
     Active Substance: MESALAMINE
     Indication: PROCTITIS ULCERATIVE
     Dosage: 1.2 G, BID
     Route: 048

REACTIONS (4)
  - Pelvic inflammatory disease [Not Recovered/Not Resolved]
  - Hypersensitivity [Not Recovered/Not Resolved]
  - Inappropriate schedule of product administration [Unknown]
  - Urinary tract discomfort [Not Recovered/Not Resolved]

NARRATIVE: CASE EVENT DATE: 20190103
